FAERS Safety Report 5563618-9 (Version None)
Quarter: 2007Q4

REPORT INFORMATION
  Report Type: 
  Country: None (occurrence: None)
  Receive Date: 20071214
  Receipt Date: 20071214
  Transmission Date: 20080405
  Serious: Yes (Other)
  Sender: FDA-Public Use
  Company Number: None

PATIENT
  Sex: Female

DRUGS (1)
  1. AMLODIPINE [Suspect]
     Indication: HYPERTENSION
     Dosage: 7.5 MG DAILY PO
     Route: 048

REACTIONS (3)
  - ASTHENIA [None]
  - BLOOD PRESSURE DECREASED [None]
  - DIZZINESS [None]
